FAERS Safety Report 21409369 (Version 1)
Quarter: 2022Q4

REPORT INFORMATION
  Report Type: Spontaneous
  Country: US (occurrence: US)
  Receive Date: 20221004
  Receipt Date: 20221004
  Transmission Date: 20230113
  Serious: No
  Sender: FDA-Public Use
  Company Number: US-ABBVIE-4138492

PATIENT
  Age: 23 Year
  Sex: Female

DRUGS (2)
  1. HUMIRA [Suspect]
     Active Substance: ADALIMUMAB
     Indication: Hidradenitis
     Route: 058
  2. Pfizer/BioNTech [Concomitant]
     Indication: COVID-19
     Route: 030

REACTIONS (9)
  - Dizziness [Recovered/Resolved]
  - Headache [Recovering/Resolving]
  - Pruritus [Recovering/Resolving]
  - Ear pain [Recovering/Resolving]
  - Muscular weakness [Recovering/Resolving]
  - Paraesthesia [Recovering/Resolving]
  - Discomfort [Recovering/Resolving]
  - Cough [Recovering/Resolving]
  - Chest discomfort [Recovering/Resolving]

NARRATIVE: CASE EVENT DATE: 20220801
